FAERS Safety Report 6582666-3 (Version None)
Quarter: 2010Q1

REPORT INFORMATION
  Report Type: 
  Country: None (occurrence: None)
  Receive Date: 20100212
  Receipt Date: 20100212
  Transmission Date: 20100710
  Serious: Yes (Hospitalization)
  Sender: FDA-Public Use
  Company Number: None

PATIENT
  Age: 66 Year
  Sex: Male
  Weight: 248 kg

DRUGS (1)
  1. ASPIRIN [Suspect]
     Dosage: 325 MG BID PO
     Route: 048
     Dates: end: 20091211

REACTIONS (1)
  - GASTRIC HAEMORRHAGE [None]
